FAERS Safety Report 8445182-X (Version None)
Quarter: 2012Q2

REPORT INFORMATION
  Report Type: 
  Country: None (occurrence: None)
  Receive Date: 20120608
  Receipt Date: 20120530
  Transmission Date: 20120825
  Serious: Yes (Hospitalization)
  Sender: FDA-Public Use
  Company Number: 2012SP029441

PATIENT
  Age: 69 Year
  Sex: Female

DRUGS (4)
  1. SPIRIVA [Concomitant]
  2. FORADIL [Concomitant]
  3. ASMANEX TWISTHALER [Suspect]
     Indication: EMPHYSEMA
     Dosage: 200 MCG;BID
     Dates: start: 20120401
  4. ASMANEX TWISTHALER [Suspect]
     Indication: CHRONIC OBSTRUCTIVE PULMONARY DISEASE
     Dosage: 200 MCG;BID
     Dates: start: 20120401

REACTIONS (1)
  - WHEEZING [None]
